FAERS Safety Report 9052845 (Version 4)
Quarter: 2013Q3

REPORT INFORMATION
  Report Type: Spontaneous
  Country: US (occurrence: US)
  Receive Date: 20130208
  Receipt Date: 20130830
  Transmission Date: 20140515
  Serious: Yes (Hospitalization)
  Sender: FDA-Public Use
  Company Number: US-B.I. PHARMACEUTICALS,INC./RIDGEFIELD-2013-BI-03207BP

PATIENT
  Age: 86 Year
  Sex: Male
  Weight: 72.57 kg

DRUGS (13)
  1. PRADAXA [Suspect]
     Indication: ATRIAL FIBRILLATION
     Dosage: 300 MG
     Dates: start: 20110202, end: 20110303
  2. PRADAXA [Suspect]
     Dates: end: 201108
  3. CARVEDILOL [Concomitant]
     Dosage: 12.5 MG
  4. OMEPRAZOLE [Concomitant]
     Dosage: 20 MG
  5. LISINOPRIL [Concomitant]
     Dosage: 10 MG
  6. WELCHOL [Concomitant]
  7. ENTERIC-COATED ASPIRIN [Concomitant]
     Dosage: 81 MG
  8. FLUVASTATIN [Concomitant]
     Dosage: 20 MG
  9. NIASPAN [Concomitant]
     Dosage: 1000 MG
  10. OMEGA-3 FISH OIL [Concomitant]
  11. IRON SULFATE [Concomitant]
     Dosage: 325 MG
  12. SUCRALFATE [Concomitant]
     Dosage: 4 G
  13. MULTIVITAMIN [Concomitant]

REACTIONS (5)
  - Gastrointestinal haemorrhage [Recovered/Resolved]
  - Gastrointestinal haemorrhage [Unknown]
  - Rectal haemorrhage [Unknown]
  - Anaemia [Unknown]
  - Contusion [Unknown]
